FAERS Safety Report 6635369-0 (Version None)
Quarter: 2010Q1

REPORT INFORMATION
  Report Type: 
  Country: None (occurrence: None)
  Receive Date: 20100315
  Receipt Date: 20100305
  Transmission Date: 20100710
  Serious: Yes (Hospitalization, Other)
  Sender: FDA-Public Use
  Company Number: JP-ABBOTT-10P-087-0625974-00

PATIENT
  Sex: Male
  Weight: 56.6 kg

DRUGS (5)
  1. CLARITH [Suspect]
     Indication: INFECTION
     Route: 048
     Dates: start: 20050131, end: 20050202
  2. IBRUPROFEN [Suspect]
     Indication: PYREXIA
     Route: 048
     Dates: start: 20050131, end: 20050202
  3. ANTOBRON [Suspect]
     Indication: PRODUCTIVE COUGH
     Route: 048
     Dates: start: 20050131, end: 20050202
  4. BLOSTAR M [Concomitant]
     Indication: DRUG USE FOR UNKNOWN INDICATION
     Route: 048
     Dates: start: 20030725
  5. FLUTIDE [Concomitant]
     Indication: DRUG USE FOR UNKNOWN INDICATION
     Route: 055
     Dates: start: 20050117, end: 20050204

REACTIONS (2)
  - HEPATITIS ACUTE [None]
  - LIVER DISORDER [None]
